FAERS Safety Report 19263149 (Version 2)
Quarter: 2021Q4

REPORT INFORMATION
  Report Type: Spontaneous
  Country: GB (occurrence: GB)
  Receive Date: 20210517
  Receipt Date: 20211116
  Transmission Date: 20220303
  Serious: No
  Sender: FDA-Public Use
  Company Number: None

PATIENT

DRUGS (26)
  1. PREGABALIN [Suspect]
     Active Substance: PREGABALIN
     Indication: Product used for unknown indication
     Dosage: UNK
     Route: 048
  2. ATORVASTATIN [Concomitant]
     Active Substance: ATORVASTATIN
     Indication: Product used for unknown indication
     Dosage: 1 DOSAGE FORM, OD
     Route: 065
     Dates: start: 20201229, end: 20210125
  3. ATORVASTATIN [Concomitant]
     Active Substance: ATORVASTATIN
     Dosage: 1 DOSAGE FORM
     Route: 065
     Dates: start: 20210126
  4. ATORVASTATIN [Concomitant]
     Active Substance: ATORVASTATIN
     Dosage: 1 DOSAGE FORM
     Route: 065
     Dates: start: 20201203, end: 20201229
  5. ATORVASTATIN [Concomitant]
     Active Substance: ATORVASTATIN
     Dosage: 1 DOSAGE FORM
     Route: 065
     Dates: start: 20201229
  6. ATORVASTATIN [Concomitant]
     Active Substance: ATORVASTATIN
     Dosage: 1 DOSAGE FORM, OD
     Route: 065
     Dates: start: 20201203
  7. CETIRIZINE [Concomitant]
     Active Substance: CETIRIZINE HYDROCHLORIDE
     Indication: Product used for unknown indication
     Dosage: 1 DOSAGE FORM, OD
     Route: 065
     Dates: start: 20201229
  8. CETIRIZINE [Concomitant]
     Active Substance: CETIRIZINE HYDROCHLORIDE
     Dosage: 1 DOSAGE FORM, OD
     Route: 065
     Dates: start: 20201203
  9. CETIRIZINE [Concomitant]
     Active Substance: CETIRIZINE HYDROCHLORIDE
     Dosage: 1 DOSAGE FORM, OD
     Route: 065
     Dates: start: 20201203, end: 20201229
  10. CETIRIZINE [Concomitant]
     Active Substance: CETIRIZINE HYDROCHLORIDE
     Dosage: 1 DOSAGE FORM, OD
     Route: 065
     Dates: start: 20201229, end: 20210125
  11. CETIRIZINE [Concomitant]
     Active Substance: CETIRIZINE HYDROCHLORIDE
     Dosage: 1 DOSAGE FORM
     Route: 065
     Dates: start: 20210126
  12. DULOXETINE [Concomitant]
     Active Substance: DULOXETINE
     Indication: Product used for unknown indication
     Dosage: 1 EVERY DAY
     Route: 065
     Dates: start: 20201203, end: 20201229
  13. DULOXETINE [Concomitant]
     Active Substance: DULOXETINE
     Dosage: TAKE ONE DAILY
     Route: 065
     Dates: start: 20210126
  14. DULOXETINE [Concomitant]
     Active Substance: DULOXETINE
     Dosage: TAKE ONE DAILY
     Route: 065
     Dates: start: 20201229
  15. DULOXETINE [Concomitant]
     Active Substance: DULOXETINE
     Dosage: 1 EVERY DAY
     Route: 065
     Dates: start: 20201229, end: 20210125
  16. DULOXETINE [Concomitant]
     Active Substance: DULOXETINE
     Dosage: 1 EVERY DAY
     Route: 065
     Dates: start: 20201203
  17. DULOXETINE [Concomitant]
     Active Substance: DULOXETINE
     Dosage: 1 EVERY DAY
     Route: 065
     Dates: start: 20210126
  18. DULOXETINE [Concomitant]
     Active Substance: DULOXETINE
     Dosage: 1 EVERY DAY
     Route: 065
     Dates: start: 20201229
  19. DULOXETINE [Concomitant]
     Active Substance: DULOXETINE
     Dosage: TAKE ONE DAILY
     Route: 065
     Dates: start: 20201229, end: 20210125
  20. DULOXETINE [Concomitant]
     Active Substance: DULOXETINE
     Dosage: TAKE ONE DAILY
     Route: 065
     Dates: start: 20201203, end: 20201229
  21. DULOXETINE [Concomitant]
     Active Substance: DULOXETINE
     Dosage: TAKE ONE DAILY
     Route: 065
     Dates: start: 20201203
  22. ACETAMINOPHEN [Concomitant]
     Active Substance: ACETAMINOPHEN
     Indication: Product used for unknown indication
     Dosage: TAKE 1 OR 2 UP TO FOUR TIMES A DAY WHEN REQUIRED
     Route: 065
     Dates: start: 20201203
  23. ACETAMINOPHEN [Concomitant]
     Active Substance: ACETAMINOPHEN
     Dosage: TAKE 1 OR 2 UP TO FOUR TIMES A DAY WHEN REQUIRED
     Route: 065
     Dates: start: 20201229, end: 20210125
  24. ACETAMINOPHEN [Concomitant]
     Active Substance: ACETAMINOPHEN
     Dosage: TAKE 1 OR 2 UP TO FOUR TIMES A DAY WHEN REQUIRED
     Route: 065
     Dates: start: 20201203, end: 20201229
  25. ACETAMINOPHEN [Concomitant]
     Active Substance: ACETAMINOPHEN
     Dosage: TAKE 1 OR 2 UP TO FOUR TIMES A DAY WHEN REQUIRED
     Route: 065
     Dates: start: 20201229
  26. ACETAMINOPHEN [Concomitant]
     Active Substance: ACETAMINOPHEN
     Dosage: TAKE 1 OR 2 UP TO FOUR TIMES A DAY WHEN REQUIRED
     Route: 065
     Dates: start: 20210126

REACTIONS (1)
  - Nightmare [Unknown]
